FAERS Safety Report 9871375 (Version 2)
Quarter: 2014Q1

REPORT INFORMATION
  Report Type: Spontaneous
  Country: JP (occurrence: JP)
  Receive Date: 20140205
  Receipt Date: 20140224
  Transmission Date: 20141002
  Serious: Yes (Other)
  Sender: FDA-Public Use
  Company Number: JP-PFIZER INC-2014027565

PATIENT
  Age: 28 Year
  Sex: Male

DRUGS (1)
  1. CABERGOLINE [Suspect]
     Indication: PROLACTINOMA
     Dosage: 0.25 MG, WEEKLY
     Route: 048

REACTIONS (2)
  - Pneumocephalus [Recovering/Resolving]
  - Cerebrospinal fluid leakage [Recovering/Resolving]
